FAERS Safety Report 6560491-7 (Version None)
Quarter: 2010Q1

REPORT INFORMATION
  Report Type: 
  Country: None (occurrence: None)
  Receive Date: 20100129
  Receipt Date: 20090923
  Transmission Date: 20100710
  Serious: Yes (Other)
  Sender: FDA-Public Use
  Company Number: US-ABBOTT-09P-163-0598796-00

PATIENT
  Sex: Male
  Weight: 108.96 kg

DRUGS (2)
  1. HUMIRA [Suspect]
     Indication: RHEUMATOID ARTHRITIS
     Dates: start: 20050101
  2. HUMIRA [Suspect]

REACTIONS (1)
  - GASTROENTERITIS VIRAL [None]
